FAERS Safety Report 14142069 (Version 1)
Quarter: 2017Q4

REPORT INFORMATION
  Report Type: Spontaneous
  Country: US (occurrence: US)
  Receive Date: 20171030
  Receipt Date: 20171030
  Transmission Date: 20180321
  Serious: Yes (Disabling)
  Sender: FDA-Public Use
  Company Number: US-NOVOPROD-569610

PATIENT
  Sex: Female

DRUGS (1)
  1. NOVOLOG [Suspect]
     Active Substance: INSULIN ASPART
     Indication: INSULIN-REQUIRING TYPE 2 DIABETES MELLITUS
     Dosage: AVERAGING FOUR VIALS A MONTH
     Route: 058

REACTIONS (1)
  - Disability [Unknown]
